FAERS Safety Report 15459829 (Version 1)
Quarter: 2018Q4

REPORT INFORMATION
  Report Type: Spontaneous
  Country: US (occurrence: US)
  Receive Date: 20181003
  Receipt Date: 20181003
  Transmission Date: 20190204
  Serious: Yes (Other)
  Sender: FDA-Public Use
  Company Number: US-BECTON DICKINSON-2018BDN00336

PATIENT
  Sex: Female

DRUGS (2)
  1. CHLORHEXIDINE-ALCOHOL [Suspect]
     Active Substance: ALCOHOL\CHLORHEXIDINE GLUCONATE
     Indication: ANTIBIOTIC PROPHYLAXIS
     Route: 061
  2. PRE-OPERATIVE PROPHYLACTIC ANTIBIOTICS [Concomitant]
     Route: 065

REACTIONS (1)
  - Postoperative wound infection [Unknown]
